FAERS Safety Report 21732103 (Version 1)
Quarter: 2022Q4

REPORT INFORMATION
  Report Type: Spontaneous
  Country: IT (occurrence: IT)
  Receive Date: 20221215
  Receipt Date: 20221215
  Transmission Date: 20230112
  Serious: Yes (Death, Hospitalization)
  Sender: FDA-Public Use
  Company Number: IT-STRIDES ARCOLAB LIMITED-2022SP016844

PATIENT
  Age: 72 Year
  Sex: Male

DRUGS (10)
  1. AMPICILLIN TRIHYDRATE [Suspect]
     Active Substance: AMPICILLIN TRIHYDRATE
     Indication: Listeriosis
     Dosage: UNK (INITIAL DOSAGE NOT STATED)
     Route: 065
  2. AMPICILLIN TRIHYDRATE [Suspect]
     Active Substance: AMPICILLIN TRIHYDRATE
     Indication: Meningoencephalitis bacterial
     Dosage: 3 GRAM, QID
     Route: 065
  3. AMPICILLIN TRIHYDRATE [Suspect]
     Active Substance: AMPICILLIN TRIHYDRATE
     Indication: Evidence based treatment
  4. DEXAMETHASONE [Suspect]
     Active Substance: DEXAMETHASONE
     Indication: Listeriosis
     Dosage: 4 MILLIGRAM, TID
     Route: 065
  5. DEXAMETHASONE [Suspect]
     Active Substance: DEXAMETHASONE
     Indication: Meningoencephalitis bacterial
     Dosage: UNK (THERAPY MAINTAINED FOR 21 DAYS WITH DOSE GRADUALLY REDUCED)
     Route: 065
  6. DEXAMETHASONE [Suspect]
     Active Substance: DEXAMETHASONE
     Indication: Evidence based treatment
  7. CEFTRIAXONE [Suspect]
     Active Substance: CEFTRIAXONE
     Indication: Evidence based treatment
     Dosage: UNK
     Route: 065
  8. ACYCLOVIR [Suspect]
     Active Substance: ACYCLOVIR
     Indication: Evidence based treatment
     Dosage: UNK
     Route: 065
  9. GENTAMICIN [Suspect]
     Active Substance: GENTAMICIN
     Indication: Listeriosis
     Dosage: 3 MILLIGRAM/KILOGRAM PER DAY
     Route: 042
  10. GENTAMICIN [Suspect]
     Active Substance: GENTAMICIN
     Indication: Meningoencephalitis bacterial
     Dosage: UNK (DIMINISHED DOSES OF GENTAMICIN WERE ADMINISTERED FOR 10 DAYS)
     Route: 042

REACTIONS (1)
  - Drug ineffective [Fatal]
